FAERS Safety Report 7118493-8 (Version None)
Quarter: 2010Q4

REPORT INFORMATION
  Report Type: 
  Country: None (occurrence: None)
  Receive Date: 20101123
  Receipt Date: 20101116
  Transmission Date: 20110411
  Serious: Yes (Other)
  Sender: FDA-Public Use
  Company Number: PHHY2010US60274

PATIENT
  Sex: Female

DRUGS (1)
  1. GENTEAL GEL (NVO) [Suspect]
     Dosage: UNK

REACTIONS (2)
  - BLINDNESS [None]
  - VISION BLURRED [None]
